FAERS Safety Report 8464243-2 (Version None)
Quarter: 2012Q2

REPORT INFORMATION
  Report Type: 
  Country: None (occurrence: None)
  Receive Date: 20120625
  Receipt Date: 20120611
  Transmission Date: 20120825
  Serious: Yes (Hospitalization)
  Sender: FDA-Public Use
  Company Number: GB-BAYER-2012-060517

PATIENT
  Age: 72 Year
  Sex: Female

DRUGS (8)
  1. ALBUTEROL [Concomitant]
     Dosage: 2 DF, BID
     Route: 045
     Dates: start: 20120326
  2. LACTULOSE [Concomitant]
     Dosage: 10 ML, BID
     Route: 048
     Dates: start: 20111221
  3. QUININE SULFATE [Concomitant]
     Dosage: 300 MG, QD
     Route: 048
     Dates: start: 20111221
  4. SENNA-MINT WAF [Concomitant]
     Dosage: UNK
     Route: 048
     Dates: start: 20111221
  5. BENDROFLUMETHIAZIDE [Concomitant]
     Dosage: 2.5 MG, QD
     Route: 048
     Dates: start: 20111221
  6. FORMOTEROL FUMARATE [Concomitant]
     Dosage: 2 DF, BID
     Route: 045
     Dates: start: 20120210
  7. RAMIPRIL [Concomitant]
     Dosage: 5 MG, QD
     Route: 048
     Dates: start: 20111221
  8. NAPROXEN SODIUM [Suspect]
     Indication: PRODUCT USED FOR UNKNOWN INDICATION
     Dosage: 500 MG, BID
     Route: 048
     Dates: start: 20111221, end: 20120520

REACTIONS (4)
  - HAEMATEMESIS [None]
  - HAEMOGLOBIN DECREASED [None]
  - DUODENAL ULCER [None]
  - MELAENA [None]
